FAERS Safety Report 17525171 (Version 1)
Quarter: 2020Q1

REPORT INFORMATION
  Report Type: Spontaneous
  Country: GB (occurrence: GB)
  Receive Date: 20200311
  Receipt Date: 20200311
  Transmission Date: 20200409
  Serious: Yes (Other)
  Sender: FDA-Public Use
  Company Number: GB-TEVA-2020-GB-1197262

PATIENT
  Age: 15 Year
  Sex: Female
  Weight: 67 kg

DRUGS (8)
  1. CO-AMOXICLAV [Suspect]
     Active Substance: AMOXICILLIN\CLAVULANATE POTASSIUM
     Dosage: 250MG/62MG/5ML, 15 ML
     Route: 065
     Dates: start: 20200110, end: 20200117
  2. SALBUTAMOL [Concomitant]
     Active Substance: ALBUTEROL
     Dosage: 2 DOSAGE FORMS
     Route: 055
     Dates: start: 20160509
  3. CLENIL MODULITE [Concomitant]
     Active Substance: BECLOMETHASONE DIPROPIONATE
     Dosage: 4 DOSAGE FORMS
     Route: 055
     Dates: start: 20170510
  4. CETIRIZINE [Concomitant]
     Active Substance: CETIRIZINE HYDROCHLORIDE
     Dosage: 5 ML
     Dates: start: 20160509
  5. FLUCLOXACILLIN [Concomitant]
     Active Substance: FLUCLOXACILLIN
     Dosage: 4 DOSAGE FORMS
     Dates: start: 20200109, end: 20200116
  6. CETRABEN EMOLLIENT CREAM [Concomitant]
     Dosage: 3 DOSAGE FORMS DAILY; APPLY THREE TIME PER DAY
     Route: 061
     Dates: start: 20160509
  7. BALNEUM [Concomitant]
     Dosage: 1 DOSAGE FORMS
     Dates: start: 20160509
  8. FUCIDIN [Concomitant]
     Active Substance: FUSIDATE SODIUM
     Dosage: APPLY FOR 10 DAYS 2 DOSAGE FORMS
     Route: 061
     Dates: start: 20191118, end: 20191125

REACTIONS (1)
  - Swelling face [Recovered/Resolved]

NARRATIVE: CASE EVENT DATE: 20200123
